FAERS Safety Report 18258633 (Version 1)
Quarter: 2020Q3

REPORT INFORMATION
  Report Type: Spontaneous
  Country: DE (occurrence: DE)
  Receive Date: 20200911
  Receipt Date: 20200911
  Transmission Date: 20201103
  Serious: Yes (Other)
  Sender: FDA-Public Use
  Company Number: DE-BIOGEN-2020BI00921474

PATIENT
  Sex: Female
  Weight: 58.5 kg

DRUGS (1)
  1. TYSABRI [Suspect]
     Active Substance: NATALIZUMAB
     Indication: MULTIPLE SCLEROSIS
     Dosage: INFUSED OVER ONE HOUR
     Route: 042
     Dates: start: 2015

REACTIONS (2)
  - Face presentation [Recovered/Resolved]
  - Maternal exposure during pregnancy [Recovered/Resolved]
